FAERS Safety Report 7115565-9 (Version None)
Quarter: 2010Q4

REPORT INFORMATION
  Report Type: 
  Country: None (occurrence: None)
  Receive Date: 20101122
  Receipt Date: 20101111
  Transmission Date: 20110411
  Serious: Yes (Other)
  Sender: FDA-Public Use
  Company Number: US-PFIZER INC-2010149787

PATIENT

DRUGS (1)
  1. ESTRING [Suspect]

REACTIONS (3)
  - CARDIAC OPERATION [None]
  - STENT PLACEMENT [None]
  - URETHRAL OPERATION [None]
